FAERS Safety Report 10045052 (Version 1)
Quarter: 2014Q1

REPORT INFORMATION
  Report Type: Spontaneous
  Country: US (occurrence: US)
  Receive Date: 20140328
  Receipt Date: 20140328
  Transmission Date: 20141002
  Serious: Yes (Other)
  Sender: FDA-Public Use
  Company Number: US-ELI_LILLY_AND_COMPANY-US201403008980

PATIENT
  Sex: Female

DRUGS (9)
  1. INSULIN HUMAN [Suspect]
     Indication: TYPE 2 DIABETES MELLITUS
     Dosage: UNK, PRN
     Route: 065
     Dates: start: 2008, end: 20140314
  2. INSULIN HUMAN [Suspect]
     Dosage: UNK, PRN
     Route: 065
     Dates: start: 20140316
  3. INSULIN HUMAN [Suspect]
     Indication: TYPE 2 DIABETES MELLITUS
     Dosage: 16 U, EACH MORNING
     Route: 065
     Dates: start: 2008, end: 20140314
  4. INSULIN HUMAN [Suspect]
     Dosage: 4 U, EACH EVENING
     Route: 065
     Dates: start: 2008, end: 20140314
  5. INSULIN HUMAN [Suspect]
     Dosage: 16 U, EACH MORNING
     Route: 065
     Dates: start: 20140316
  6. INSULIN HUMAN [Suspect]
     Dosage: 4 U, EACH EVENING
     Route: 065
     Dates: start: 20140316
  7. LANTUS [Concomitant]
     Dosage: UNK
     Route: 065
     Dates: start: 20140314, end: 20140315
  8. APIDRA [Concomitant]
     Dosage: UNK
     Route: 065
     Dates: start: 20140314, end: 20140315
  9. SYNTHROID [Concomitant]
     Route: 065

REACTIONS (6)
  - Hypoglycaemic unconsciousness [Unknown]
  - Thyroid disorder [Unknown]
  - Blood glucose increased [Unknown]
  - Abdominal discomfort [Unknown]
  - Thirst [Unknown]
  - Blood glucose decreased [Unknown]
